FAERS Safety Report 12372254 (Version 2)
Quarter: 2016Q2

REPORT INFORMATION
  Report Type: Spontaneous
  Country: IN (occurrence: IN)
  Receive Date: 20160516
  Receipt Date: 20160516
  Transmission Date: 20160815
  Serious: Yes (Other)
  Sender: FDA-Public Use
  Company Number: IN-ACTAVIS-2016-09898

PATIENT
  Age: 35 Year
  Sex: Female

DRUGS (4)
  1. DEXAMETHASONE (UNKNOWN) [Suspect]
     Active Substance: DEXAMETHASONE
     Indication: PHYLLODES TUMOUR
     Dosage: 2 CYCLES
     Route: 065
  2. DOXORUBICIN (UNKNOWN) [Suspect]
     Active Substance: DOXORUBICIN
     Indication: PHYLLODES TUMOUR
     Dosage: 2 CYCLES
     Route: 065
  3. ENDOXAN                            /00021101/ [Suspect]
     Active Substance: CYCLOPHOSPHAMIDE
     Indication: PHYLLODES TUMOUR
     Dosage: 2  CYCLES
     Route: 065
  4. VINCRISTINE (UNKNOWN) [Suspect]
     Active Substance: VINCRISTINE
     Indication: PHYLLODES TUMOUR
     Dosage: 2 CYCLES
     Route: 065

REACTIONS (1)
  - Treatment failure [Unknown]
